FAERS Safety Report 13203848 (Version 1)
Quarter: 2017Q1

REPORT INFORMATION
  Report Type: Spontaneous
  Country: AU (occurrence: AU)
  Receive Date: 20170209
  Receipt Date: 20170209
  Transmission Date: 20170428
  Serious: Yes (Other)
  Sender: FDA-Public Use
  Company Number: AU-STRIDES ARCOLAB LIMITED-2017SP001357

PATIENT

DRUGS (6)
  1. IPILIMUMAB [Concomitant]
     Active Substance: IPILIMUMAB
     Indication: SUPERFICIAL SPREADING MELANOMA STAGE III
     Dosage: 10 MG/KG, THRICE  A WEEK
     Route: 042
  2. PREDNISOLONE. [Suspect]
     Active Substance: PREDNISOLONE
     Indication: HEPATITIS
     Dosage: 150 MG, DAILY
     Route: 048
  3. MYCOPHENOLATE MOFETIL. [Suspect]
     Active Substance: MYCOPHENOLATE MOFETIL
     Indication: HEPATITIS
     Dosage: 1 G, BID
  4. PREDNISOLONE. [Suspect]
     Active Substance: PREDNISOLONE
     Dosage: UNKNOWN(DOSE DECREASED)
  5. MYCOPHENOLATE MOFETIL. [Suspect]
     Active Substance: MYCOPHENOLATE MOFETIL
     Dosage: 1 G, UNK
  6. METHYLPREDNISOLONE. [Suspect]
     Active Substance: METHYLPREDNISOLONE
     Indication: HEPATITIS
     Dosage: 500 MG, PULSE THERAPY, DAILY
     Route: 042

REACTIONS (2)
  - Off label use [Unknown]
  - Drug ineffective for unapproved indication [Unknown]
